FAERS Safety Report 17481937 (Version 1)
Quarter: 2020Q3

REPORT INFORMATION
  Report Type: Spontaneous
  Country: US (occurrence: US)
  Receive Date: 20200302
  Receipt Date: 20200302
  Transmission Date: 20201105
  Serious: Yes (Hospitalization)
  Sender: FDA-Public Use
  Company Number: US-REGULIS-2081154

PATIENT
  Age: 53 Year
  Sex: Female

DRUGS (2)
  1. METHYLENE BLUE. [Suspect]
     Active Substance: METHYLENE BLUE
     Indication: METHAEMOGLOBINAEMIA
     Route: 065
  2. PHENAZOPYRIDINE. [Suspect]
     Active Substance: PHENAZOPYRIDINE
     Route: 065

REACTIONS (3)
  - Confusional state [Unknown]
  - Hypotension [Unknown]
  - Cyanosis [Unknown]
